FAERS Safety Report 9911715 (Version 1)
Quarter: 2014Q1

REPORT INFORMATION
  Report Type: Spontaneous
  Country: NZ (occurrence: NZ)
  Receive Date: 20140219
  Receipt Date: 20140219
  Transmission Date: 20141002
  Serious: Yes (Hospitalization)
  Sender: FDA-Public Use
  Company Number: PHHY2014NZ019921

PATIENT
  Age: 63 Year
  Sex: Female

DRUGS (8)
  1. ALLOPURINOL [Suspect]
     Indication: GOUT
     Dosage: 200 MG, QD
  2. ASPIRIN [Concomitant]
  3. SPIRONOLACTONE [Concomitant]
  4. FUROSEMIDE [Concomitant]
  5. METOPROLOL [Concomitant]
  6. WARFARIN [Concomitant]
  7. POTASSIUM [Concomitant]
  8. AMIODARONE [Concomitant]

REACTIONS (25)
  - Reversible ischaemic neurological deficit [Recovering/Resolving]
  - Altered state of consciousness [Recovering/Resolving]
  - Gliosis [Recovering/Resolving]
  - VIIth nerve paralysis [Recovering/Resolving]
  - Hypotonia [Recovering/Resolving]
  - Craniocerebral injury [Recovering/Resolving]
  - Hemianopia [Recovering/Resolving]
  - Vasculitis cerebral [Recovering/Resolving]
  - Cerebral infarction [Recovering/Resolving]
  - Cholangitis [Recovering/Resolving]
  - Drug reaction with eosinophilia and systemic symptoms [Recovering/Resolving]
  - Pyrexia [Recovering/Resolving]
  - Rash generalised [Recovering/Resolving]
  - Gait disturbance [Recovering/Resolving]
  - Muscular weakness [Recovering/Resolving]
  - Myositis [Recovering/Resolving]
  - Lymphadenopathy [Recovering/Resolving]
  - Rash maculo-papular [Recovering/Resolving]
  - Dysphagia [Recovering/Resolving]
  - Rash erythematous [Recovering/Resolving]
  - Drug eruption [Recovering/Resolving]
  - Eosinophilia [Recovering/Resolving]
  - Sinus bradycardia [Recovering/Resolving]
  - Torsade de pointes [Recovering/Resolving]
  - Renal failure [Recovering/Resolving]
